FAERS Safety Report 8197952-3 (Version None)
Quarter: 2012Q1

REPORT INFORMATION
  Report Type: 
  Country: None (occurrence: None)
  Receive Date: 20120309
  Receipt Date: 20120303
  Transmission Date: 20120608
  Serious: Yes (Hospitalization)
  Sender: FDA-Public Use
  Company Number: NL-SANOFI-AVENTIS-2012SA014620

PATIENT

DRUGS (2)
  1. LANTUS [Suspect]
     Route: 065
  2. GLIMEPIRIDE [Suspect]
     Route: 048

REACTIONS (2)
  - OVERDOSE [None]
  - RENAL FAILURE ACUTE [None]
